FAERS Safety Report 8634623 (Version 3)
Quarter: 2013Q2

REPORT INFORMATION
  Report Type: Report from Study
  Country: MX (occurrence: MX)
  Receive Date: 20120626
  Receipt Date: 20130510
  Transmission Date: 20140414
  Serious: Yes (Death, Hospitalization, Other)
  Sender: FDA-Public Use
  Company Number: PHHY2012MX054201

PATIENT
  Age: 74 Year
  Sex: Female

DRUGS (2)
  1. ACLASTA [Suspect]
     Indication: OSTEOPOROSIS
     Dosage: 5 MG/100 ML ONCE A YEAR
     Route: 042
     Dates: start: 20100424
  2. RISPERIDONE [Concomitant]
     Indication: SENILE DEMENTIA

REACTIONS (5)
  - Cardiac arrest [Fatal]
  - Pneumonia [Unknown]
  - Respiratory disorder [Unknown]
  - General physical health deterioration [Unknown]
  - Myocardial infarction [Unknown]
